FAERS Safety Report 7286827-X (Version None)
Quarter: 2011Q1

REPORT INFORMATION
  Report Type: 
  Country: None (occurrence: None)
  Receive Date: 20110210
  Receipt Date: 20110128
  Transmission Date: 20110831
  Serious: Yes (Other)
  Sender: FDA-Public Use
  Company Number: GB-MYLANLABS-2011S1002039

PATIENT
  Age: 79 Year
  Sex: Male

DRUGS (3)
  1. RAUWOLFIA SERPENTINA [Concomitant]
     Indication: DEPRESSION
  2. DIAZEPAM [Concomitant]
     Indication: RESTLESSNESS
  3. WARFARIN SODIUM [Suspect]
     Indication: PULMONARY EMBOLISM
     Route: 048

REACTIONS (1)
  - INTERNATIONAL NORMALISED RATIO INCREASED [None]
